FAERS Safety Report 6465828-5 (Version None)
Quarter: 2009Q4

REPORT INFORMATION
  Report Type: 
  Country: None (occurrence: None)
  Receive Date: 20091201
  Receipt Date: 20091116
  Transmission Date: 20100525
  Serious: Yes (Hospitalization)
  Sender: FDA-Public Use
  Company Number: JP-GENENTECH-293061

PATIENT
  Sex: Female

DRUGS (1)
  1. XOLAIR [Suspect]
     Indication: ASTHMA
     Dosage: 225 MG, UNK
     Route: 058
     Dates: start: 20091001, end: 20091001

REACTIONS (2)
  - DIZZINESS [None]
  - GAIT DISTURBANCE [None]
